FAERS Safety Report 6434443-1 (Version None)
Quarter: 2009Q4

REPORT INFORMATION
  Report Type: 
  Country: None (occurrence: None)
  Receive Date: 20091110
  Receipt Date: 20091030
  Transmission Date: 20100525
  Serious: Yes (Hospitalization)
  Sender: FDA-Public Use
  Company Number: IT-PFIZER INC-2009278134

PATIENT
  Sex: Female

DRUGS (2)
  1. *DRUG, UNSPECIFIED [Suspect]
     Dosage: NO DOSE GIVEN
  2. MABTHERA [Suspect]

REACTIONS (4)
  - BONE PAIN [None]
  - CHILLS [None]
  - HYPERTENSIVE CRISIS [None]
  - TACHYCARDIA [None]
